FAERS Safety Report 25395723 (Version 1)
Quarter: 2025Q2

REPORT INFORMATION
  Report Type: Report from Study
  Country: US (occurrence: US)
  Receive Date: 20250604
  Receipt Date: 20250604
  Transmission Date: 20250717
  Serious: Yes (Other)
  Sender: ABBVIE
  Company Number: US-ABBVIE-6301945

PATIENT
  Sex: Female

DRUGS (8)
  1. HUMIRA [Suspect]
     Active Substance: ADALIMUMAB
     Indication: Uveitis
     Route: 058
     Dates: start: 201807
  2. HUMIRA [Suspect]
     Active Substance: ADALIMUMAB
     Indication: Rheumatoid arthritis
  3. HUMIRA [Suspect]
     Active Substance: ADALIMUMAB
     Indication: Systemic lupus erythematosus
  4. HUMIRA [Suspect]
     Active Substance: ADALIMUMAB
     Indication: Pain
  5. HUMIRA [Suspect]
     Active Substance: ADALIMUMAB
     Indication: Arthritis
  6. HUMIRA [Suspect]
     Active Substance: ADALIMUMAB
     Indication: Arthritis
  7. HUMIRA [Suspect]
     Active Substance: ADALIMUMAB
     Indication: Thyroid disorder
  8. HUMIRA [Suspect]
     Active Substance: ADALIMUMAB
     Indication: Eye inflammation

REACTIONS (4)
  - Visual impairment [Unknown]
  - Injection site discharge [Not Recovered/Not Resolved]
  - Injection site reaction [Unknown]
  - Device issue [Unknown]
